FAERS Safety Report 8765868 (Version 1)
Quarter: 2012Q4

REPORT INFORMATION
  Report Type: 
  Country: JP (occurrence: JP)
  Receive Date: 20120904
  Receipt Date: 20120904
  Transmission Date: 20130627
  Serious: Yes (Hospitalization)
  Sender: FDA-Public Use
  Company Number: PHHY2012JP074942

PATIENT
  Age: 41 Year
  Sex: Female

DRUGS (5)
  1. CICLOSPORIN [Suspect]
     Indication: SYSTEMIC LUPUS ERYTHEMATOSUS
     Dosage: 100 mg, QD
  2. CICLOSPORIN [Suspect]
     Dosage: 200 mg, QD
  3. PREDNISOLONE [Suspect]
     Indication: SYSTEMIC LUPUS ERYTHEMATOSUS
     Dosage: 30 mg, QD
  4. PREDNISOLONE [Suspect]
     Dosage: 5 mg, QD
  5. PREDNISOLONE [Suspect]
     Dosage: 60 mg, QD

REACTIONS (7)
  - Histiocytosis haematophagic [Unknown]
  - Disseminated intravascular coagulation [Unknown]
  - Systemic lupus erythematosus [Unknown]
  - Arthralgia [Unknown]
  - Pyrexia [Unknown]
  - Disease recurrence [None]
  - Drug ineffective [None]
